FAERS Safety Report 4850432-2 (Version None)
Quarter: 2005Q4

REPORT INFORMATION
  Report Type: 
  Country: None (occurrence: None)
  Receive Date: 20051125
  Receipt Date: 20050120
  Transmission Date: 20060501
  Serious: Yes (Hospitalization)
  Sender: FDA-Public Use
  Company Number: 2004052229

PATIENT
  Age: 47 Year
  Sex: Male

DRUGS (3)
  1. TIKOSYN [Suspect]
     Indication: ATRIAL FIBRILLATION
     Dosage: 1000 MCG (500 MCG, EVERY 12 HOURS), ORAL
     Route: 048
     Dates: start: 20040206, end: 20040629
  2. WARFARIN SODIUM [Concomitant]
  3. ATORVASTATIN CALCIUM [Concomitant]

REACTIONS (1)
  - ATRIAL FIBRILLATION [None]
